FAERS Safety Report 23227722 (Version 2)
Quarter: 2023Q4

REPORT INFORMATION
  Report Type: Report from Study
  Country: US (occurrence: US)
  Receive Date: 20231125
  Receipt Date: 20231203
  Transmission Date: 20240109
  Serious: No
  Sender: FDA-Public Use
  Company Number: US-002147023-NVSC2023US250487

PATIENT
  Sex: Male

DRUGS (1)
  1. ENTRESTO [Suspect]
     Active Substance: SACUBITRIL\VALSARTAN
     Indication: Product used for unknown indication
     Dosage: UNK
     Route: 065

REACTIONS (5)
  - Depression [Unknown]
  - Anxiety [Unknown]
  - Insomnia [Unknown]
  - Ill-defined disorder [Unknown]
  - Diarrhoea [Unknown]
